FAERS Safety Report 16431891 (Version 2)
Quarter: 2019Q3

REPORT INFORMATION
  Report Type: Spontaneous
  Country: US (occurrence: US)
  Receive Date: 20190614
  Receipt Date: 20190827
  Transmission Date: 20191004
  Serious: Yes (Other)
  Sender: FDA-Public Use
  Company Number: US-GLAXOSMITHKLINE-US2019AMR104780

PATIENT

DRUGS (2)
  1. BUPROPION. [Suspect]
     Active Substance: BUPROPION
     Indication: DEPRESSION
     Dosage: ON HIGH DOSAGE
     Route: 065
  2. WELLBUTRIN XL [Suspect]
     Active Substance: BUPROPION HYDROCHLORIDE
     Indication: DEPRESSION
     Dosage: ON A HIGH DOSAG
     Route: 065

REACTIONS (6)
  - Tinnitus [Unknown]
  - Drug ineffective [Unknown]
  - Emotional poverty [Unknown]
  - Confusional state [Unknown]
  - Seizure [Unknown]
  - Feeling abnormal [Unknown]
